FAERS Safety Report 18564005 (Version 1)
Quarter: 2020Q4

REPORT INFORMATION
  Report Type: Spontaneous
  Country: JP (occurrence: JP)
  Receive Date: 20201201
  Receipt Date: 20201201
  Transmission Date: 20210114
  Serious: Yes (Hospitalization, Other)
  Sender: FDA-Public Use
  Company Number: JP-AUROBINDO-AUR-APL-2020-059250

PATIENT
  Age: 54 Year
  Sex: Female

DRUGS (25)
  1. MELPHALAN. [Suspect]
     Active Substance: MELPHALAN
     Indication: DIFFUSE LARGE B-CELL LYMPHOMA STAGE IV
     Dosage: UNK UNK, 1 CYCLE 1 COURSE OF R-LEED THERAPY
     Route: 065
  2. CYTARABINE. [Suspect]
     Active Substance: CYTARABINE
     Indication: DIFFUSE LARGE B-CELL LYMPHOMA STAGE IV
     Dosage: UNK UNK, 2 CYCLE 2 COURSES OF R-CHASE THERAPY (HIGH-DOSE CYTARABINE)
     Route: 065
  3. DOXORUBICIN [Suspect]
     Active Substance: DOXORUBICIN
     Indication: DIFFUSE LARGE B-CELL LYMPHOMA STAGE IV
     Dosage: UNK UNK, 1 CYCLE 1 COURSE OF R-CHOEP THERAPY
     Route: 065
  4. ETOPOSIDE. [Suspect]
     Active Substance: ETOPOSIDE
     Dosage: UNK UNK, 1 CYCLE 1 COURSE OF R-LEED THERAPY
     Route: 065
  5. RITUXIMAB. [Suspect]
     Active Substance: RITUXIMAB
     Dosage: 1 CYCLE 1 COURSE OF R-CHOEP THERAPY
  6. CYCLOPHOSPHAMIDE. [Suspect]
     Active Substance: CYCLOPHOSPHAMIDE
     Dosage: UNK UNK, 4 CYCLE 4 COURSES OF R-CHOP THERAPY
     Route: 065
  7. DOXORUBICIN [Suspect]
     Active Substance: DOXORUBICIN
     Dosage: UNK UNK,4 CYCLE 4 COURSES OF R-CHOP THERAPY
     Route: 065
  8. RITUXIMAB. [Suspect]
     Active Substance: RITUXIMAB
     Indication: DIFFUSE LARGE B-CELL LYMPHOMA STAGE IV
     Dosage: I CYCLE 1 COURSE OF R-LEED THERAPY
     Route: 065
  9. RITUXIMAB. [Suspect]
     Active Substance: RITUXIMAB
     Dosage: 4 CYCLE 4 COURSES OF R-CHOP THERAPY
     Route: 065
  10. CYCLOPHOSPHAMIDE. [Suspect]
     Active Substance: CYCLOPHOSPHAMIDE
     Indication: DIFFUSE LARGE B-CELL LYMPHOMA STAGE IV
     Dosage: UNK UNK, 2 CYCLE 2 COURSES OF R-CHASE THERAPY
     Route: 065
  11. DEXAMETHASONE. [Suspect]
     Active Substance: DEXAMETHASONE
     Indication: DIFFUSE LARGE B-CELL LYMPHOMA STAGE IV
     Dosage: UNK UNK, 2 CYCLE 2 COURSES OF R-CHASE THERAPY
     Route: 065
  12. DEXAMETHASONE. [Suspect]
     Active Substance: DEXAMETHASONE
     Dosage: UNK UNK, 1 CYCLE 1 COURSE OF R-LEED THERAPY
     Route: 065
  13. METHOTREXATE. [Suspect]
     Active Substance: METHOTREXATE
     Indication: DIFFUSE LARGE B-CELL LYMPHOMA STAGE IV
     Dosage: UNK UNK, 2 CYCLE 2 COURSES OF R-MPV THERAPY
     Route: 065
  14. PROCARBAZINE [Suspect]
     Active Substance: PROCARBAZINE
     Indication: DIFFUSE LARGE B-CELL LYMPHOMA STAGE IV
     Dosage: UNK, 2 CYCLE, 2 COURSES OF R-MPV THERAPY
     Route: 065
  15. VINCRISTINE [Suspect]
     Active Substance: VINCRISTINE
     Dosage: UNK UNK, 4 CYCLE 4 COURSES OF R-CHOP THERAPY
     Route: 065
  16. CYCLOPHOSPHAMIDE. [Suspect]
     Active Substance: CYCLOPHOSPHAMIDE
     Dosage: UNK UNK,1 CYCLE 1 COURSE OF R-CHOEP THERAPY
     Route: 065
  17. ETOPOSIDE. [Suspect]
     Active Substance: ETOPOSIDE
     Dosage: UNK UNK,2 CYCLICAL,2 COURSES OF R-CHASE THERAPY
     Route: 065
  18. CYCLOPHOSPHAMIDE. [Suspect]
     Active Substance: CYCLOPHOSPHAMIDE
     Dosage: UNK UNK, 1 CYCLE 1 COURSE OF R-LEED THERAPY
     Route: 065
  19. ETOPOSIDE. [Suspect]
     Active Substance: ETOPOSIDE
     Indication: DIFFUSE LARGE B-CELL LYMPHOMA STAGE IV
     Dosage: UNK UNK, 1 CYCLE, 1 COURSE OF R-CHOEP THERAPY
     Route: 065
  20. PREDNISOLONE. [Suspect]
     Active Substance: PREDNISOLONE
     Dosage: UNK UNK, 4 CYCLE 4 COURSES OF R-CHOP THERAPY
     Route: 065
  21. RITUXIMAB. [Suspect]
     Active Substance: RITUXIMAB
     Dosage: 2 CYCLE 2 COURSES OF R-CHASE THERAPY
     Route: 065
  22. VINCRISTINE [Suspect]
     Active Substance: VINCRISTINE
     Dosage: UNK UNK, 2 CYCLE 2 COURSES OF R-MPV THERAPY
     Route: 065
  23. PREDNISOLONE. [Suspect]
     Active Substance: PREDNISOLONE
     Indication: DIFFUSE LARGE B-CELL LYMPHOMA STAGE IV
     Dosage: UNK UNK, 1 CYCLE 1 COURSE OF R-CHOEP THERAPY
     Route: 065
  24. RITUXIMAB. [Suspect]
     Active Substance: RITUXIMAB
     Dosage: 2 CYCLE 2 COURSES OF R-MPV THERAPY
     Route: 065
  25. VINCRISTINE [Suspect]
     Active Substance: VINCRISTINE
     Indication: DIFFUSE LARGE B-CELL LYMPHOMA STAGE IV
     Dosage: UNK UNK, 1 CYCLE 1 COURSE OF R-CHOEP THERAPY
     Route: 065

REACTIONS (2)
  - Hepatitis B reactivation [Recovered/Resolved]
  - Hepatitis [Recovered/Resolved]
